FAERS Safety Report 11289457 (Version 4)
Quarter: 2015Q3

REPORT INFORMATION
  Report Type: Spontaneous
  Country: CO (occurrence: CO)
  Receive Date: 20150721
  Receipt Date: 20150812
  Transmission Date: 20151125
  Serious: Yes (Hospitalization, Congenital Anomaly)
  Sender: FDA-Public Use
  Company Number: CO-JNJFOC-20150712824

PATIENT
  Age: 1 Day
  Sex: Male
  Weight: 2.9 kg

DRUGS (2)
  1. PARACETAMOL [Suspect]
     Active Substance: ACETAMINOPHEN
     Indication: PRODUCT USED FOR UNKNOWN INDICATION
     Route: 064
  2. PARACETAMOL [Suspect]
     Active Substance: ACETAMINOPHEN
     Route: 064

REACTIONS (5)
  - Right ventricular hypertrophy [Recovered/Resolved]
  - Patent ductus arteriosus [Recovered/Resolved]
  - Foetal arrhythmia [Recovered/Resolved]
  - Foetal exposure during pregnancy [Recovered/Resolved]
  - Pulmonary hypertension [Recovered/Resolved]
